FAERS Safety Report 5261169-2 (Version None)
Quarter: 2007Q1

REPORT INFORMATION
  Report Type: 
  Country: None (occurrence: None)
  Receive Date: 20070309
  Receipt Date: 20070226
  Transmission Date: 20070707
  Serious: Yes (Other)
  Sender: FDA-Public Use
  Company Number: GB-PFIZER INC-2007009912

PATIENT
  Age: 75 Year
  Sex: Female

DRUGS (4)
  1. NEURONTIN [Suspect]
     Indication: NEURALGIA
     Route: 048
  2. LANSOPRAZOLE [Concomitant]
  3. ALL OTHER THERAPEUTIC PRODUCTS [Concomitant]
  4. ALL OTHER THERAPEUTIC PRODUCTS [Concomitant]

REACTIONS (4)
  - ACCIDENTAL OVERDOSE [None]
  - DYSARTHRIA [None]
  - FATIGUE [None]
  - LOSS OF CONSCIOUSNESS [None]
